FAERS Safety Report 25569851 (Version 1)
Quarter: 2025Q3

REPORT INFORMATION
  Report Type: Report from Study
  Country: EU (occurrence: EU)
  Receive Date: 20250717
  Receipt Date: 20250717
  Transmission Date: 20251020
  Serious: Yes (Death, Hospitalization)
  Sender: TEVA
  Company Number: None

PATIENT
  Age: 60 Year
  Sex: Female
  Weight: 71 kg

DRUGS (10)
  1. VINORELBINE [Suspect]
     Active Substance: VINORELBINE TARTRATE
     Indication: Breast cancer metastatic
     Dosage: LAST DOSE PRIOR TO SAE:23 NOV 2010.DOSE AS PER PROTOCOL.
     Route: 065
     Dates: start: 20100921
  2. PANTOZOL [Concomitant]
     Active Substance: PANTOPRAZOLE SODIUM
     Indication: Product used for unknown indication
     Route: 065
     Dates: end: 20110109
  3. PLAVIX [Concomitant]
     Active Substance: CLOPIDOGREL BISULFATE
     Indication: Product used for unknown indication
     Route: 065
     Dates: end: 20110109
  4. LASIX [Concomitant]
     Active Substance: FUROSEMIDE
     Indication: Product used for unknown indication
     Route: 065
     Dates: end: 20110109
  5. XELODA [Suspect]
     Active Substance: CAPECITABINE
     Indication: Breast cancer
     Dosage: DOSE:1000 MG/M2 TWICE DAILY, ORAL, DAYS 1-14 (AS PER PROTOCOL) LAST DOSE PRIOR TO SAE ON 22 OCT 2010
     Route: 065
     Dates: start: 20100921
  6. CEFADROXIL [Concomitant]
     Active Substance: CEFADROXIL
     Indication: Product used for unknown indication
     Route: 065
     Dates: end: 20110109
  7. ENALAPRIL [Concomitant]
     Active Substance: ENALAPRIL
     Indication: Product used for unknown indication
     Route: 065
     Dates: end: 20110109
  8. ALLOPURINOL [Concomitant]
     Active Substance: ALLOPURINOL
     Indication: Product used for unknown indication
     Route: 065
     Dates: end: 20110109
  9. BISOPROLOL FUMARATE\HYDROCHLOROTHIAZIDE [Concomitant]
     Active Substance: BISOPROLOL FUMARATE\HYDROCHLOROTHIAZIDE
     Indication: Product used for unknown indication
     Route: 065
     Dates: end: 20110109
  10. BEVACIZUMAB [Suspect]
     Active Substance: BEVACIZUMAB
     Indication: Breast cancer
     Dosage: LAST DOSE PRIOR TO SAE: 15 NOV 2010. ON DAY 1(TAKEN AS PER PROTOCOL)
     Route: 065
     Dates: start: 20100921

REACTIONS (4)
  - Asthenia [Fatal]
  - Sepsis [Fatal]
  - Renal failure [Fatal]
  - Pulmonary embolism [Fatal]

NARRATIVE: CASE EVENT DATE: 20101123
